FAERS Safety Report 16631545 (Version 1)
Quarter: 2019Q3

REPORT INFORMATION
  Report Type: Spontaneous
  Country: JP (occurrence: JP)
  Receive Date: 20190725
  Receipt Date: 20190725
  Transmission Date: 20191004
  Serious: Yes (Death, Hospitalization)
  Sender: FDA-Public Use
  Company Number: JP-ASTRAZENECA-2019SE31128

PATIENT
  Age: 78 Year
  Sex: Male
  Weight: 58 kg

DRUGS (2)
  1. IMFINZI [Suspect]
     Active Substance: DURVALUMAB
     Indication: NON-SMALL CELL LUNG CANCER
     Route: 041
     Dates: start: 20181218, end: 20181218
  2. NESINA [Concomitant]
     Active Substance: ALOGLIPTIN BENZOATE
     Route: 048
     Dates: end: 20190311

REACTIONS (6)
  - Lung disorder [Fatal]
  - Infection [Unknown]
  - Acute respiratory failure [Fatal]
  - Radiation pneumonitis [Fatal]
  - Pneumonia [Fatal]
  - Back pain [Unknown]

NARRATIVE: CASE EVENT DATE: 20190110
